FAERS Safety Report 11638839 (Version 3)
Quarter: 2015Q4

REPORT INFORMATION
  Report Type: Spontaneous
  Country: JP (occurrence: JP)
  Receive Date: 20151017
  Receipt Date: 20151230
  Transmission Date: 20160304
  Serious: Yes (Other)
  Sender: FDA-Public Use
  Company Number: JP-AMGEN-JPNSP2015109015

PATIENT
  Age: 60 Year
  Sex: Female

DRUGS (1)
  1. NESP [Suspect]
     Active Substance: DARBEPOETIN ALFA
     Indication: MYELODYSPLASTIC SYNDROME
     Dosage: 240 MUG, QWK
     Route: 065
     Dates: start: 201506

REACTIONS (2)
  - Myelofibrosis [Not Recovered/Not Resolved]
  - Platelet count increased [Recovered/Resolved]

NARRATIVE: CASE EVENT DATE: 20151002
